FAERS Safety Report 9525813 (Version 2)
Quarter: 2013Q4

REPORT INFORMATION
  Report Type: Report from Study
  Country: US (occurrence: US)
  Receive Date: 20130916
  Receipt Date: 20131111
  Transmission Date: 20140711
  Serious: Yes (Hospitalization)
  Sender: FDA-Public Use
  Company Number: US-JNJFOC-20130904682

PATIENT
  Age: 58 Year
  Sex: Female
  Weight: 113.4 kg

DRUGS (16)
  1. REMICADE [Suspect]
     Indication: OSTEOARTHRITIS
     Dosage: BEGAN 8 OR 9 YEARS AGO
     Route: 042
  2. REMICADE [Suspect]
     Indication: OSTEOARTHRITIS
     Route: 042
  3. REMICADE [Suspect]
     Indication: PSORIATIC ARTHROPATHY
     Route: 042
  4. REMICADE [Suspect]
     Indication: PSORIATIC ARTHROPATHY
     Dosage: BEGAN 8 OR 9 YEARS AGO
     Route: 042
  5. RESTORIL [Concomitant]
     Indication: SLEEP DISORDER THERAPY
     Dosage: AT NIGHT
     Route: 048
  6. CELEXA [Concomitant]
     Indication: ANXIETY
     Route: 048
  7. METHOTREXATE [Concomitant]
     Indication: PSORIATIC ARTHROPATHY
     Dosage: 2.5MG/5 TABLETS
     Route: 048
     Dates: start: 2012
  8. FOLIC ACID [Concomitant]
     Indication: PSORIATIC ARTHROPATHY
     Route: 048
     Dates: start: 2012
  9. DIOVAN [Concomitant]
     Indication: BLOOD PRESSURE
     Route: 048
     Dates: start: 2012
  10. MICROZIDE [Concomitant]
     Indication: BLOOD PRESSURE
     Dosage: 1 CAPSULE A DAY
     Route: 065
     Dates: start: 2012
  11. DEPAKOTE [Concomitant]
     Indication: BIPOLAR DISORDER
     Dosage: 1000MG/TABLET
     Route: 048
  12. GLUCOPHAGE [Concomitant]
     Indication: DIABETES MELLITUS
     Route: 048
  13. SYNTHROID [Concomitant]
     Indication: THYROIDECTOMY
     Route: 048
  14. TRAMADOL [Concomitant]
     Indication: PAIN
     Route: 048
  15. TRAVATAN [Concomitant]
     Indication: GLAUCOMA
     Dosage: 1 DROP/ EACH EYE AT NIGHT
     Route: 047
  16. ALPHAGAN [Concomitant]
     Indication: GLAUCOMA
     Dosage: 1 DROP/ EACH EYE IN THE MORNING
     Route: 047

REACTIONS (2)
  - Chest pain [Not Recovered/Not Resolved]
  - Urinary tract infection [Unknown]
